FAERS Safety Report 5348563-6 (Version None)
Quarter: 2007Q2

REPORT INFORMATION
  Report Type: 
  Country: None (occurrence: None)
  Receive Date: 20070606
  Receipt Date: 20070525
  Transmission Date: 20071010
  Serious: Yes (Other)
  Sender: FDA-Public Use
  Company Number: US-PFIZER INC-2007044086

PATIENT
  Age: 44 Year
  Sex: Female
  Weight: 49.4 kg

DRUGS (8)
  1. TIKOSYN [Suspect]
     Indication: ATRIAL FIBRILLATION
  2. COREG [Concomitant]
  3. COUMADIN [Concomitant]
  4. VASOTEC [Concomitant]
  5. POTASSIUM ACETATE [Concomitant]
  6. MAGNESIUM SULFATE [Concomitant]
  7. DIGOXIN [Concomitant]
  8. SPIRONOLACTONE [Concomitant]

REACTIONS (6)
  - BLOOD URINE PRESENT [None]
  - CHEST PAIN [None]
  - DYSPNOEA [None]
  - FLUID RETENTION [None]
  - GROIN PAIN [None]
  - POLLAKIURIA [None]
